FAERS Safety Report 9425379 (Version 1)
Quarter: 2013Q3

REPORT INFORMATION
  Report Type: Spontaneous
  Country: GB (occurrence: GB)
  Receive Date: 20130724
  Receipt Date: 20130724
  Transmission Date: 20140515
  Serious: Yes (Life-Threatening, Other)
  Sender: FDA-Public Use
  Company Number: GER/UKI/13/0032678

PATIENT
  Age: 46 Year
  Sex: Male

DRUGS (11)
  1. TERBINAFINE (TERBINAFINE) [Suspect]
     Indication: ONYCHOMYCOSIS
     Route: 048
     Dates: start: 20130409, end: 20130513
  2. ALFUZOSIN (ALFUZOSIN) [Concomitant]
  3. ATENOLOL (ATENOLOL) [Concomitant]
  4. DOVOBET (DAIVOBET) [Concomitant]
  5. ETORICOXIB (ETORICOXIB) [Concomitant]
  6. FOLIC ACID (FOLIC ACID) [Concomitant]
  7. HYDROXYCHLOROQUINE (HYDROXYCHLOROQUINE) [Concomitant]
  8. LANSOPRAZOLE (LANSOPRAZOLE) [Concomitant]
  9. METHOTREXATE (METHOTREXATE) [Concomitant]
  10. MIRTAZAPINE (MIRTAZAPINE) [Concomitant]
  11. REMEDEINE (PARAMOL-118) [Concomitant]

REACTIONS (5)
  - Rash pruritic [None]
  - Feeling hot [None]
  - Erythrodermic psoriasis [None]
  - Skin exfoliation [None]
  - Eye swelling [None]
